FAERS Safety Report 7497122-8 (Version None)
Quarter: 2011Q2

REPORT INFORMATION
  Report Type: 
  Country: None (occurrence: None)
  Receive Date: 20110523
  Receipt Date: 20110512
  Transmission Date: 20111010
  Serious: Yes (Other)
  Sender: FDA-Public Use
  Company Number: US-SANOFI-AVENTIS-2011SA031162

PATIENT
  Age: 68 Year
  Sex: Male

DRUGS (3)
  1. EYE DROPS [Concomitant]
  2. LANTUS [Suspect]
     Dosage: DOSE:50 UNIT(S)
     Route: 058
  3. SOLOSTAR [Suspect]

REACTIONS (3)
  - CATARACT [None]
  - RETINAL TEAR [None]
  - VISUAL ACUITY REDUCED [None]
